FAERS Safety Report 14616677 (Version 1)
Quarter: 2018Q1

REPORT INFORMATION
  Report Type: Spontaneous
  Country: US (occurrence: US)
  Receive Date: 20180308
  Receipt Date: 20180308
  Transmission Date: 20180509
  Serious: Yes (Disabling)
  Sender: FDA-Public Use
  Company Number: None

PATIENT
  Age: 35 Year
  Sex: Female
  Weight: 67.5 kg

DRUGS (1)
  1. CIPROFLOXACIN. [Suspect]
     Active Substance: CIPROFLOXACIN
     Indication: URINARY TRACT INFECTION
     Dosage: ?          QUANTITY:14 TABLET(S);?
     Route: 048
     Dates: start: 20171207, end: 20171210

REACTIONS (13)
  - Urinary tract infection [None]
  - Dizziness [None]
  - Drug intolerance [None]
  - Paraesthesia [None]
  - Incorrect drug administration duration [None]
  - Nephrolithiasis [None]
  - Tinnitus [None]
  - Vertigo [None]
  - Insomnia [None]
  - Anxiety [None]
  - Flushing [None]
  - Peripheral coldness [None]
  - Pain [None]

NARRATIVE: CASE EVENT DATE: 20171210
